FAERS Safety Report 17032624 (Version 1)
Quarter: 2019Q4

REPORT INFORMATION
  Report Type: Spontaneous
  Country: US (occurrence: US)
  Receive Date: 20191014
  Receipt Date: 20191014
  Transmission Date: 20200122
  Serious: No
  Sender: FDA-Public Use
  Company Number: None

PATIENT
  Age: 35 Year
  Sex: Female

DRUGS (1)
  1. GLATIRAMER 40MG PFS INJ (12/BOX) [Suspect]
     Active Substance: GLATIRAMER
     Indication: MULTIPLE SCLEROSIS
     Route: 058
     Dates: start: 201906

REACTIONS (5)
  - Injection site pain [None]
  - Injection site erythema [None]
  - Injection site mass [None]
  - Injection site warmth [None]
  - Urticaria [None]

NARRATIVE: CASE EVENT DATE: 20191014
